FAERS Safety Report 14009853 (Version 3)
Quarter: 2017Q4

REPORT INFORMATION
  Report Type: Spontaneous
  Country: BE (occurrence: BE)
  Receive Date: 20170925
  Receipt Date: 20171222
  Transmission Date: 20180321
  Serious: Yes (Other)
  Sender: FDA-Public Use
  Company Number: BE-AMGEN-BELSP2017128023

PATIENT
  Sex: Male

DRUGS (4)
  1. EZETROL [Concomitant]
     Active Substance: EZETIMIBE
     Dosage: 10 UNK, UNK
  2. GAMBARAN [Concomitant]
     Active Substance: NABUMETONE
  3. REPATHA [Suspect]
     Active Substance: EVOLOCUMAB
     Indication: TYPE IIA HYPERLIPIDAEMIA
     Dosage: 420 MG, Q2WK
     Route: 058
     Dates: start: 201703
  4. ATORVASTATIN [Concomitant]
     Active Substance: ATORVASTATIN
     Dosage: 80 UNK, UNK

REACTIONS (4)
  - Rheumatoid arthritis [Recovering/Resolving]
  - Electrophoresis abnormal [Not Recovered/Not Resolved]
  - Haemoglobin decreased [Unknown]
  - Blood creatine phosphokinase increased [Recovered/Resolved]

NARRATIVE: CASE EVENT DATE: 2017
